FAERS Safety Report 15913281 (Version 1)
Quarter: 2019Q1

REPORT INFORMATION
  Report Type: Report from Study
  Country: US (occurrence: US)
  Receive Date: 20190204
  Receipt Date: 20190204
  Transmission Date: 20190417
  Serious: Yes (Hospitalization, Other)
  Sender: FDA-Public Use
  Company Number: US-MYLANLABS-2018M1093415

PATIENT
  Age: 37 Year
  Sex: Male
  Weight: 72.8 kg

DRUGS (202)
  1. TOBI [Suspect]
     Active Substance: TOBRAMYCIN
     Indication: PSEUDOMONAS INFECTION
     Dosage: UNK UNK, BID
     Route: 055
     Dates: start: 20160531, end: 20160604
  2. CAYSTON [Suspect]
     Active Substance: AZTREONAM
     Dosage: 75 MG, BID
     Route: 055
     Dates: start: 20170905, end: 20171003
  3. FISH OIL [Concomitant]
     Active Substance: FISH OIL
     Indication: NUTRITIONAL SUPPLEMENTATION
     Dosage: UNK
     Route: 065
     Dates: start: 20160112, end: 20160205
  4. CREON [Concomitant]
     Active Substance: PANCRELIPASE AMYLASE\PANCRELIPASE LIPASE\PANCRELIPASE PROTEASE
     Indication: CYSTIC FIBROSIS PANCREATIC
     Dosage: UNK
     Route: 065
     Dates: start: 20140101
  5. SODIUM CHLORIDE. [Concomitant]
     Active Substance: SODIUM CHLORIDE
     Indication: BRONCHOSCOPY
     Dosage: 0.9 PERCENT
     Route: 065
     Dates: start: 20160615, end: 20160620
  6. SODIUM CHLORIDE. [Concomitant]
     Active Substance: SODIUM CHLORIDE
     Dosage: 0.9 PERCENT
     Route: 065
     Dates: start: 20170609, end: 20170619
  7. SUBLIMAZE [Concomitant]
     Active Substance: FENTANYL CITRATE
     Dosage: UNK
     Route: 065
     Dates: start: 20170717, end: 20170717
  8. ISOVUE [Concomitant]
     Active Substance: IOPAMIDOL
     Dosage: UNK
     Route: 065
     Dates: start: 20160616, end: 20160616
  9. MERREM [Concomitant]
     Active Substance: MEROPENEM
     Dosage: UNK
     Route: 065
     Dates: start: 20171006, end: 20171013
  10. FLEXERIL [Concomitant]
     Active Substance: CYCLOBENZAPRINE HYDROCHLORIDE
     Dosage: UNK
     Route: 065
     Dates: start: 20170702, end: 20170720
  11. FLEXERIL [Concomitant]
     Active Substance: CYCLOBENZAPRINE HYDROCHLORIDE
     Dosage: UNK
     Route: 065
     Dates: start: 20171006, end: 20171013
  12. PNEUMOVAX 23 [Concomitant]
     Active Substance: PNEUMOCOCCAL VACCINE, POLYVALENT 23
     Dosage: UNK
     Route: 065
     Dates: start: 20170110, end: 20170110
  13. NEBCIN [Concomitant]
     Active Substance: TOBRAMYCIN SULFATE
     Dosage: UNK
     Route: 065
     Dates: start: 20160825, end: 20160902
  14. NEBCIN [Concomitant]
     Active Substance: TOBRAMYCIN SULFATE
     Dosage: UNK
     Route: 065
     Dates: start: 20170501, end: 20170515
  15. HEPARIN [Concomitant]
     Active Substance: HEPARIN SODIUM
     Indication: PRODUCT USED FOR UNKNOWN INDICATION
     Dosage: UNK
     Route: 065
     Dates: start: 20161028, end: 20161102
  16. AZACTAM [Concomitant]
     Active Substance: AZTREONAM
     Indication: CYSTIC FIBROSIS LUNG
     Dosage: UNK
     Route: 065
     Dates: start: 20160109, end: 20160109
  17. ZOFRAN [Concomitant]
     Active Substance: ONDANSETRON HYDROCHLORIDE
     Dosage: UNK
     Route: 065
     Dates: start: 20170706, end: 20170720
  18. TOBI [Suspect]
     Active Substance: TOBRAMYCIN
     Dosage: 300 OT, BID
     Route: 055
     Dates: start: 20161209, end: 20170108
  19. TOBI [Suspect]
     Active Substance: TOBRAMYCIN
     Dosage: 300 OT, BID
     Route: 055
     Dates: start: 20170305, end: 20170326
  20. OMEPRAZOLE. [Concomitant]
     Active Substance: OMEPRAZOLE
     Dosage: 40 MG, BID
     Route: 048
     Dates: start: 20171005
  21. PULMOZYME [Concomitant]
     Active Substance: DORNASE ALFA
     Indication: CYSTIC FIBROSIS LUNG
     Dosage: UNK
     Route: 065
     Dates: start: 20160707, end: 20171006
  22. CREON [Concomitant]
     Active Substance: PANCRELIPASE AMYLASE\PANCRELIPASE LIPASE\PANCRELIPASE PROTEASE
     Dosage: UNK
     Route: 065
     Dates: start: 20180916, end: 20180924
  23. SODIUM CHLORIDE. [Concomitant]
     Active Substance: SODIUM CHLORIDE
     Dosage: 0.9 PERCENT
     Route: 065
     Dates: start: 20170327, end: 20170404
  24. ISOVUE [Concomitant]
     Active Substance: IOPAMIDOL
     Dosage: UNK
     Route: 065
     Dates: start: 20160615, end: 20160615
  25. MYCOSTATIN [Concomitant]
     Active Substance: NYSTATIN
     Dosage: UNK
     Route: 065
     Dates: start: 20161201, end: 20161208
  26. ROXICODONE [Concomitant]
     Active Substance: OXYCODONE HYDROCHLORIDE
     Indication: PAIN
     Dosage: UNK
     Dates: start: 20160602, end: 20160604
  27. NEBCIN [Concomitant]
     Active Substance: TOBRAMYCIN SULFATE
     Dosage: UNK
     Route: 065
     Dates: start: 20161129, end: 20161208
  28. FORTAZ [Concomitant]
     Active Substance: CEFTAZIDIME SODIUM
     Indication: PSEUDOMONAS INFECTION
     Dosage: UNK
     Route: 065
     Dates: start: 20161028, end: 20161031
  29. LACTOBACILLUS RHAMNOSUS [Concomitant]
     Active Substance: LACTOBACILLUS RHAMNOSUS
     Dosage: UNK
     Route: 065
     Dates: start: 20170609, end: 20170619
  30. FLAGYL [Concomitant]
     Active Substance: METRONIDAZOLE\METRONIDAZOLE HYDROCHLORIDE
     Indication: BACTERIAL INFECTION
     Dosage: UNK
     Route: 065
     Dates: start: 20161129, end: 20161208
  31. ZOFRAN [Concomitant]
     Active Substance: ONDANSETRON HYDROCHLORIDE
     Dosage: UNK
     Route: 065
     Dates: start: 20180228, end: 20180316
  32. CIPROFLOXACIN. [Concomitant]
     Active Substance: CIPROFLOXACIN
     Dosage: UNK
     Route: 065
     Dates: start: 20180517, end: 20180531
  33. ACETAMINOPHEN. [Concomitant]
     Active Substance: ACETAMINOPHEN
     Indication: INFECTIVE PULMONARY EXACERBATION OF CYSTIC FIBROSIS
     Dosage: UNK
     Route: 065
     Dates: start: 20180722, end: 20180722
  34. ACETAMINOPHEN. [Concomitant]
     Active Substance: ACETAMINOPHEN
     Dosage: UNK
     Route: 065
     Dates: start: 20180915, end: 20180924
  35. TOBI [Suspect]
     Active Substance: TOBRAMYCIN
     Dosage: 300 OT, BID
     Route: 055
     Dates: start: 20161101, end: 20161129
  36. CEFEPIME [Suspect]
     Active Substance: CEFEPIME HYDROCHLORIDE
     Indication: PRODUCT USED FOR UNKNOWN INDICATION
     Dosage: 2 GM Q8H
     Route: 042
     Dates: start: 20170328, end: 20170330
  37. REGLAN [Concomitant]
     Active Substance: METOCLOPRAMIDE HYDROCHLORIDE
     Dosage: 5 MG, TID
     Route: 048
     Dates: start: 20171005
  38. VITAMIN D3 [Concomitant]
     Active Substance: CHOLECALCIFEROL
     Dosage: UNK
     Route: 065
     Dates: start: 20170703, end: 20170720
  39. FLUTICASONE. [Concomitant]
     Active Substance: FLUTICASONE
     Indication: CHRONIC SINUSITIS
     Dosage: UNK
     Route: 065
     Dates: start: 20140101
  40. MEGESTROL [Concomitant]
     Active Substance: MEGESTROL
     Indication: DECREASED APPETITE
     Dosage: UNK
     Route: 065
     Dates: start: 20161028
  41. SODIUM CHLORIDE. [Concomitant]
     Active Substance: SODIUM CHLORIDE
     Indication: CYSTIC FIBROSIS LUNG
     Dosage: 7 PERCENT
     Route: 065
     Dates: start: 20150101, end: 20170213
  42. SODIUM CHLORIDE. [Concomitant]
     Active Substance: SODIUM CHLORIDE
     Dosage: 0.9 PERCENT
     Route: 065
     Dates: start: 20171006, end: 20171013
  43. SODIUM CHLORIDE. [Concomitant]
     Active Substance: SODIUM CHLORIDE
     Dosage: 0.9 PERCENT
     Route: 065
     Dates: start: 20170712, end: 20170712
  44. ULTRAM [Concomitant]
     Active Substance: TRAMADOL HYDROCHLORIDE
     Indication: FIBROMYALGIA
     Dosage: UNK
     Route: 065
     Dates: start: 20130101
  45. SUBLIMAZE [Concomitant]
     Active Substance: FENTANYL CITRATE
     Indication: PROCEDURAL PAIN
     Dosage: UNK
     Route: 065
     Dates: start: 20160601, end: 20160601
  46. SUBLIMAZE [Concomitant]
     Active Substance: FENTANYL CITRATE
     Dosage: UNK
     Route: 065
     Dates: start: 20170712, end: 20170712
  47. LIDOCAINE. [Concomitant]
     Active Substance: LIDOCAINE
     Indication: PROCEDURAL PAIN
     Dosage: 2 %, UNK
     Route: 065
     Dates: start: 20160615, end: 20160615
  48. MERREM [Concomitant]
     Active Substance: MEROPENEM
     Indication: PSEUDOMONAS INFECTION
     Dosage: UNK
     Route: 065
     Dates: start: 20160825, end: 20160902
  49. MERREM [Concomitant]
     Active Substance: MEROPENEM
     Dosage: UNK
     Route: 065
     Dates: start: 20180529, end: 20180605
  50. MERREM [Concomitant]
     Active Substance: MEROPENEM
     Dosage: UNK
     Route: 065
     Dates: start: 20181026, end: 20181102
  51. COMPAZINE                          /00013302/ [Concomitant]
     Active Substance: PROCHLORPERAZINE EDISYLATE
     Indication: NAUSEA
     Dosage: UNK
     Route: 065
     Dates: start: 20160601, end: 20160604
  52. FLEXERIL [Concomitant]
     Active Substance: CYCLOBENZAPRINE HYDROCHLORIDE
     Indication: MUSCLE SPASMS
     Dosage: UNK
     Route: 065
     Dates: start: 20170609, end: 20170619
  53. PREVNAR [Concomitant]
     Active Substance: PNEUMOCOCCAL 7-VALENT CONJUGATE VACCINE (DIPHTHERIA CRM197 PROTEIN)
     Indication: PROPHYLAXIS
     Dosage: UNK
     Route: 065
     Dates: start: 20160619, end: 20160619
  54. CEPACOL                            /00104701/ [Concomitant]
     Indication: COUGH
     Dosage: UNK
     Route: 065
     Dates: start: 20160618, end: 20160620
  55. NEBCIN [Concomitant]
     Active Substance: TOBRAMYCIN SULFATE
     Dosage: UNK
     Route: 065
     Dates: start: 20171006, end: 20171013
  56. NEBCIN [Concomitant]
     Active Substance: TOBRAMYCIN SULFATE
     Dosage: UNK
     Route: 065
     Dates: start: 20180530, end: 20180530
  57. HEPARIN [Concomitant]
     Active Substance: HEPARIN SODIUM
     Dosage: UNK
     Route: 065
     Dates: start: 20161129, end: 20161208
  58. ZOFRAN [Concomitant]
     Active Substance: ONDANSETRON HYDROCHLORIDE
     Indication: NAUSEA
     Dosage: UNK
     Route: 065
     Dates: start: 20161129, end: 20161208
  59. HEPARIN PF NOVO [Concomitant]
     Dosage: UNK
     Route: 065
     Dates: start: 20170609, end: 20170619
  60. MYCELEX [Concomitant]
     Active Substance: CLOTRIMAZOLE
     Indication: ORAL CANDIDIASIS
     Dosage: UNK
     Route: 065
     Dates: start: 20171121, end: 20171204
  61. ACETAMINOPHEN. [Concomitant]
     Active Substance: ACETAMINOPHEN
     Dosage: UNK
     Route: 065
     Dates: start: 20181026, end: 20181102
  62. CAYSTON [Suspect]
     Active Substance: AZTREONAM
     Dosage: 75 MG, TID
     Route: 055
     Dates: start: 20160615, end: 20160619
  63. TYLENOL [Concomitant]
     Active Substance: ACETAMINOPHEN
     Indication: PAIN
     Dosage: UNK
     Route: 065
     Dates: start: 20140905
  64. METOCLOPRAMIDE. [Concomitant]
     Active Substance: METOCLOPRAMIDE
     Indication: IMPAIRED GASTRIC EMPTYING
     Dosage: UNK
     Route: 065
     Dates: start: 20140101
  65. ADEKS [Concomitant]
     Indication: NUTRITIONAL SUPPLEMENTATION
     Dosage: UNK
     Route: 065
     Dates: start: 20150818, end: 20170619
  66. DUONEB [Concomitant]
     Active Substance: ALBUTEROL SULFATE\IPRATROPIUM BROMIDE
     Dosage: UNK
     Route: 065
     Dates: start: 20170109, end: 20170109
  67. ZITHROMAX [Concomitant]
     Active Substance: AZITHROMYCIN DIHYDRATE
     Indication: CYSTIC FIBROSIS LUNG
     Dosage: UNK
     Route: 065
     Dates: start: 20160531, end: 20160601
  68. SUBLIMAZE [Concomitant]
     Active Substance: FENTANYL CITRATE
     Indication: BRONCHOSCOPY
     Dosage: UNK
     Route: 065
     Dates: start: 20160615, end: 20160619
  69. ISOVUE [Concomitant]
     Active Substance: IOPAMIDOL
     Dosage: UNK
     Dates: start: 20160619, end: 20160619
  70. LIDOCAINE. [Concomitant]
     Active Substance: LIDOCAINE
     Indication: BRONCHOSCOPY
     Dosage: 2 %, UNK
     Route: 065
     Dates: start: 20160531, end: 20160531
  71. LIDOCAINE. [Concomitant]
     Active Substance: LIDOCAINE
     Dosage: 4 %, UNK
     Route: 065
     Dates: start: 20170712, end: 20170712
  72. VITAMIN K1 [Concomitant]
     Active Substance: PHYTONADIONE
     Dosage: UNK
     Route: 065
     Dates: start: 20170330, end: 20170330
  73. SENOKOT [Concomitant]
     Active Substance: SENNOSIDES
     Indication: CONSTIPATION
     Dosage: UNK
     Route: 065
     Dates: start: 20160531, end: 20160604
  74. ROCEPHIN [Concomitant]
     Active Substance: CEFTRIAXONE SODIUM
     Indication: PROPHYLAXIS
     Dosage: UNK
     Route: 065
     Dates: start: 20160619, end: 20160619
  75. MORPHINE [Concomitant]
     Active Substance: MORPHINE
     Dosage: UNK
     Route: 065
     Dates: start: 20170328, end: 20170329
  76. PROMETHAZINE AND CODEINE [Concomitant]
     Active Substance: CODEINE PHOSPHATE\PROMETHAZINE HYDROCHLORIDE
     Indication: COUGH
     Dosage: UNK
     Route: 065
     Dates: start: 20160619, end: 20160619
  77. NEBCIN [Concomitant]
     Active Substance: TOBRAMYCIN SULFATE
     Dosage: UNK
     Route: 065
     Dates: start: 20161028, end: 20161102
  78. NEBCIN [Concomitant]
     Active Substance: TOBRAMYCIN SULFATE
     Dosage: UNK
     Route: 065
     Dates: start: 20171121, end: 20171121
  79. NEBCIN [Concomitant]
     Active Substance: TOBRAMYCIN SULFATE
     Dosage: UNK
     Route: 065
     Dates: start: 20180529, end: 20180529
  80. NEBCIN [Concomitant]
     Active Substance: TOBRAMYCIN SULFATE
     Dosage: UNK
     Route: 065
     Dates: start: 20180915, end: 20180924
  81. NEBCIN [Concomitant]
     Active Substance: TOBRAMYCIN SULFATE
     Dosage: UNK
     Route: 065
     Dates: start: 20181026, end: 20181102
  82. HEPARIN [Concomitant]
     Active Substance: HEPARIN SODIUM
     Dosage: UNK
     Route: 065
     Dates: start: 20170109, end: 20170118
  83. LACTOBACILLUS RHAMNOSUS [Concomitant]
     Active Substance: LACTOBACILLUS RHAMNOSUS
     Indication: PROBIOTIC THERAPY
     Dosage: UNK
     Route: 065
     Dates: start: 20161028, end: 20161102
  84. LACTOBACILLUS RHAMNOSUS [Concomitant]
     Active Substance: LACTOBACILLUS RHAMNOSUS
     Dosage: UNK
     Route: 065
     Dates: start: 20170327, end: 20170404
  85. AZACTAM [Concomitant]
     Active Substance: AZTREONAM
     Dosage: UNK
     Route: 065
     Dates: start: 20170609, end: 20170619
  86. AZACTAM [Concomitant]
     Active Substance: AZTREONAM
     Dosage: UNK
     Route: 065
     Dates: start: 20180223, end: 20180301
  87. ZOFRAN [Concomitant]
     Active Substance: ONDANSETRON HYDROCHLORIDE
     Dosage: UNK
     Route: 065
     Dates: start: 20180223, end: 20180228
  88. HEPARIN PF NOVO [Concomitant]
     Indication: PRODUCT USED FOR UNKNOWN INDICATION
     Dosage: UNK
     Route: 065
     Dates: start: 20170327, end: 20170404
  89. PAIN EASE                          /08051701/ [Concomitant]
     Indication: BRONCHOSCOPY
     Dosage: UNK
     Route: 065
     Dates: start: 20170712, end: 20170712
  90. TOBI PODHALER [Suspect]
     Active Substance: TOBRAMYCIN
     Indication: PSEUDOMONAS INFECTION
     Dosage: UNK
     Route: 055
     Dates: start: 20160530, end: 20160531
  91. TOBI PODHALER [Suspect]
     Active Substance: TOBRAMYCIN
     Dosage: 112 OT, BID
     Route: 055
     Dates: start: 20160401, end: 20160428
  92. TOBI [Suspect]
     Active Substance: TOBRAMYCIN
     Dosage: 720 MG, QD
     Route: 042
     Dates: start: 20171006
  93. CAYSTON [Suspect]
     Active Substance: AZTREONAM
     Dosage: 75 OT, TID
     Route: 065
     Dates: start: 20160702, end: 20160801
  94. CAYSTON [Suspect]
     Active Substance: AZTREONAM
     Dosage: 75 MG, TID
     Route: 055
     Dates: start: 201701, end: 20170109
  95. TYLENOL [Concomitant]
     Active Substance: ACETAMINOPHEN
     Dosage: UNK
     Route: 065
     Dates: start: 20170702, end: 20170720
  96. VITAMIN D3 [Concomitant]
     Active Substance: CHOLECALCIFEROL
     Indication: VITAMIN D DEFICIENCY
     Dosage: UNK
     Route: 065
     Dates: start: 20160620, end: 20170619
  97. VITAMIN D3 [Concomitant]
     Active Substance: CHOLECALCIFEROL
     Dosage: UNK
     Route: 065
     Dates: start: 20170619
  98. PULMOZYME [Concomitant]
     Active Substance: DORNASE ALFA
     Indication: BRONCHOSCOPY
     Dosage: UNK
     Route: 065
     Dates: start: 20170712, end: 20170712
  99. PULMOZYME [Concomitant]
     Active Substance: DORNASE ALFA
     Dosage: UNK
     Route: 065
     Dates: start: 20171121, end: 20171204
  100. MULTIVITAMIN                       /00097801/ [Concomitant]
     Active Substance: VITAMINS
     Indication: NUTRITIONAL SUPPLEMENTATION
     Dosage: UNK
     Route: 065
     Dates: start: 20140407, end: 20170619
  101. POLYETHYLENE GLYCOL [Concomitant]
     Active Substance: POLYETHYLENE GLYCOLS
     Indication: CONSTIPATION
     Dosage: UNK
     Route: 065
     Dates: start: 20140101, end: 20170702
  102. SODIUM CHLORIDE. [Concomitant]
     Active Substance: SODIUM CHLORIDE
     Dosage: 0.9 PERCENT
     Route: 065
     Dates: start: 20170702, end: 20170720
  103. SODIUM CHLORIDE. [Concomitant]
     Active Substance: SODIUM CHLORIDE
     Dosage: 0.9 PERCENT
     Route: 065
     Dates: start: 20170717, end: 20170717
  104. TRAZODONE [Concomitant]
     Active Substance: TRAZODONE HYDROCHLORIDE
     Indication: SLEEP DISORDER
     Dosage: UNK
     Route: 065
     Dates: start: 20140101, end: 20180125
  105. COLACE [Concomitant]
     Active Substance: DOCUSATE SODIUM
     Indication: FAECES HARD
     Dosage: UNK
     Route: 065
     Dates: start: 20160531, end: 20160604
  106. CODEINE [Concomitant]
     Active Substance: CODEINE
     Indication: PAIN
     Dosage: UNK
     Route: 065
     Dates: start: 20160531, end: 20160603
  107. MERREM [Concomitant]
     Active Substance: MEROPENEM
     Dosage: UNK
     Route: 065
     Dates: start: 20170702, end: 20170720
  108. MERREM [Concomitant]
     Active Substance: MEROPENEM
     Dosage: UNK
     Route: 065
     Dates: start: 20171121, end: 20171204
  109. MERREM [Concomitant]
     Active Substance: MEROPENEM
     Dosage: UNK
     Route: 065
     Dates: start: 20180301, end: 20180316
  110. VERSED [Concomitant]
     Active Substance: MIDAZOLAM HYDROCHLORIDE
     Indication: BRONCHOSCOPY
     Dosage: UNK
     Route: 065
     Dates: start: 20160615, end: 20160619
  111. VERSED [Concomitant]
     Active Substance: MIDAZOLAM HYDROCHLORIDE
     Dosage: UNK
     Route: 065
     Dates: start: 20170717, end: 20170717
  112. MYCOSTATIN [Concomitant]
     Active Substance: NYSTATIN
     Indication: ORAL CANDIDIASIS
     Dosage: UNK
     Route: 065
     Dates: start: 20160531, end: 20160604
  113. VITAMIN K1 [Concomitant]
     Active Substance: PHYTONADIONE
     Indication: THROMBOSIS
     Dosage: UNK
     Route: 065
     Dates: start: 20160531, end: 20160602
  114. VITAMIN K1 [Concomitant]
     Active Substance: PHYTONADIONE
     Indication: NAUSEA
     Dosage: UNK
     Route: 065
     Dates: start: 20160619, end: 20160619
  115. FLEXERIL [Concomitant]
     Active Substance: CYCLOBENZAPRINE HYDROCHLORIDE
     Indication: PAIN
     Dosage: UNK
     Route: 065
     Dates: start: 20160619, end: 20160619
  116. NEBCIN [Concomitant]
     Active Substance: TOBRAMYCIN SULFATE
     Dosage: UNK
     Route: 065
     Dates: start: 20180531, end: 20180531
  117. NEBCIN [Concomitant]
     Active Substance: TOBRAMYCIN SULFATE
     Dosage: UNK
     Route: 065
     Dates: start: 20180722, end: 20180727
  118. LACTOBACILLUS RHAMNOSUS [Concomitant]
     Active Substance: LACTOBACILLUS RHAMNOSUS
     Dosage: UNK
     Route: 065
     Dates: start: 20161129, end: 20161208
  119. CIPROFLOXACIN. [Concomitant]
     Active Substance: CIPROFLOXACIN
     Indication: CYSTIC FIBROSIS LUNG
     Dosage: UNK
     Route: 065
     Dates: start: 20170426, end: 20170515
  120. BENADRYL [Concomitant]
     Active Substance: DIPHENHYDRAMINE HYDROCHLORIDE
     Indication: NAUSEA
     Dosage: UNK
     Route: 065
     Dates: start: 20180529, end: 20180529
  121. MULTI VITAMIN                      /08408501/ [Concomitant]
     Active Substance: VITAMINS
     Indication: NUTRITIONAL SUPPLEMENTATION
     Dosage: UNK
     Route: 065
     Dates: start: 20180611
  122. TOBI PODHALER [Suspect]
     Active Substance: TOBRAMYCIN
     Indication: CYSTIC FIBROSIS LUNG
     Dosage: 300 MG, BID
     Route: 055
  123. TOBI PODHALER [Suspect]
     Active Substance: TOBRAMYCIN
     Dosage: 300 MG, QD
     Route: 055
     Dates: start: 20170301, end: 20170327
  124. CAYSTON [Suspect]
     Active Substance: AZTREONAM
     Dosage: 75 MG, TID
     Route: 055
     Dates: start: 20160501, end: 20160530
  125. CAYSTON [Suspect]
     Active Substance: AZTREONAM
     Dosage: 75 MG, BID
     Route: 055
     Dates: start: 20170930
  126. CAYSTON [Suspect]
     Active Substance: AZTREONAM
     Dosage: 75 MG, BID
     Route: 055
     Dates: start: 20171014, end: 20171111
  127. ALBUTEROL                          /00139501/ [Concomitant]
     Active Substance: ALBUTEROL
     Dosage: UNK
  128. COLISTIN [Concomitant]
     Active Substance: COLISTIN
     Indication: PRODUCT USED FOR UNKNOWN INDICATION
     Dosage: 75 MG, BID
     Route: 055
     Dates: start: 20171012, end: 20171013
  129. PULMOZYME [Concomitant]
     Active Substance: DORNASE ALFA
     Dosage: UNK
     Route: 065
     Dates: start: 20170717, end: 20170717
  130. MULTIVITAMIN                       /00097801/ [Concomitant]
     Active Substance: VITAMINS
     Dosage: UNK
     Route: 065
     Dates: start: 20180916, end: 20180924
  131. MULTIVITAMIN                       /00097801/ [Concomitant]
     Active Substance: VITAMINS
     Dosage: UNK
     Route: 065
     Dates: start: 20181026, end: 20181102
  132. SODIUM CHLORIDE. [Concomitant]
     Active Substance: SODIUM CHLORIDE
     Indication: CATHETER MANAGEMENT
     Dosage: 0.9 PERCENT
     Route: 065
     Dates: start: 20160530, end: 20160604
  133. SUBLIMAZE [Concomitant]
     Active Substance: FENTANYL CITRATE
     Indication: PAIN
     Dosage: UNK
     Route: 065
     Dates: start: 20160531, end: 20160531
  134. LIDOCAINE. [Concomitant]
     Active Substance: LIDOCAINE
     Dosage: 2 %, UNK
     Route: 065
     Dates: start: 20160619, end: 20160619
  135. VERSED [Concomitant]
     Active Substance: MIDAZOLAM HYDROCHLORIDE
     Indication: ANXIETY
     Dosage: UNK
     Route: 065
     Dates: start: 20160601, end: 20160601
  136. CIPRO [Concomitant]
     Active Substance: CIPROFLOXACIN HYDROCHLORIDE
     Indication: PSEUDOMONAS INFECTION
     Dosage: UNK
     Route: 065
     Dates: start: 20160615, end: 20160618
  137. FLEXERIL [Concomitant]
     Active Substance: CYCLOBENZAPRINE HYDROCHLORIDE
     Dosage: UNK
     Route: 065
     Dates: start: 20171121, end: 20171204
  138. EMLA [Concomitant]
     Active Substance: LIDOCAINE\PRILOCAINE
     Indication: PAIN
     Dosage: UNK
     Route: 065
     Dates: start: 20161028, end: 20161102
  139. NEILMED SINUS RINSE [Concomitant]
     Active Substance: SODIUM BICARBONATE\SODIUM CHLORIDE
     Indication: NASAL IRRIGATION
     Dosage: UNK
     Route: 065
     Dates: start: 20161028, end: 20161102
  140. AZACTAM [Concomitant]
     Active Substance: AZTREONAM
     Indication: PSEUDOMONAS INFECTION
     Dosage: UNK
     Route: 065
     Dates: start: 20161129, end: 20161208
  141. ANCEF [Concomitant]
     Active Substance: CEFAZOLIN SODIUM
     Indication: STAPHYLOCOCCAL INFECTION
     Dosage: UNK
     Route: 065
     Dates: start: 20161201, end: 20161208
  142. LIDODERM [Concomitant]
     Active Substance: LIDOCAINE
     Indication: PAIN IN EXTREMITY
     Dosage: UNK
     Route: 065
     Dates: start: 20161130, end: 20161208
  143. AZITHROMYCIN ANHYDROUS. [Concomitant]
     Active Substance: AZITHROMYCIN ANHYDROUS
     Indication: CYSTIC FIBROSIS LUNG
     Dosage: UNK
     Route: 065
     Dates: start: 20170213
  144. PERCOCET                           /00446701/ [Concomitant]
     Active Substance: ACETAMINOPHEN\OXYCODONE HYDROCHLORIDE\OXYCODONE TEREPHTHALATE
     Indication: PAIN
     Dosage: UNK
     Route: 065
     Dates: start: 20170704, end: 20170720
  145. IMITREX [Concomitant]
     Active Substance: SUMATRIPTAN SUCCINATE
     Indication: MIGRAINE
     Dosage: UNK
     Route: 065
     Dates: start: 20170704, end: 20170720
  146. CETIRIZINE [Concomitant]
     Active Substance: CETIRIZINE HYDROCHLORIDE
     Indication: SEASONAL ALLERGY
     Dosage: UNK
     Route: 065
     Dates: start: 20170702
  147. CETIRIZINE [Concomitant]
     Active Substance: CETIRIZINE HYDROCHLORIDE
     Indication: INFECTIVE PULMONARY EXACERBATION OF CYSTIC FIBROSIS
     Dosage: UNK
     Route: 065
     Dates: start: 20180722, end: 20180727
  148. SUMATRIPTAN. [Concomitant]
     Active Substance: SUMATRIPTAN
     Indication: MIGRAINE WITHOUT AURA
     Dosage: UNK
     Route: 065
     Dates: start: 20180204
  149. ACETAMINOPHEN. [Concomitant]
     Active Substance: ACETAMINOPHEN
     Dosage: UNK
     Dates: start: 20180723, end: 20180727
  150. TOBI PODHALER [Suspect]
     Active Substance: TOBRAMYCIN
     Indication: CYSTIC FIBROSIS LUNG
     Dosage: UNK
  151. TOBI PODHALER [Suspect]
     Active Substance: TOBRAMYCIN
     Indication: PSEUDOMONAS INFECTION
  152. TOBI [Suspect]
     Active Substance: TOBRAMYCIN
     Indication: CYSTIC FIBROSIS LUNG
     Dosage: 300 OT, BID
     Route: 055
     Dates: start: 20160620, end: 20160701
  153. CAYSTON [Suspect]
     Active Substance: AZTREONAM
     Indication: PSEUDOMONAS INFECTION
     Dosage: UNK
     Route: 065
     Dates: start: 20150101
  154. ALBUTEROL                          /00139501/ [Concomitant]
     Active Substance: ALBUTEROL
     Indication: CYSTIC FIBROSIS LUNG
     Dosage: 2.5 MG, PRN
     Route: 055
     Dates: start: 20160120
  155. ALBUTEROL                          /00139501/ [Concomitant]
     Active Substance: ALBUTEROL
     Dosage: UNK
     Route: 065
     Dates: start: 20180105
  156. REGLAN [Concomitant]
     Active Substance: METOCLOPRAMIDE HYDROCHLORIDE
     Indication: IMPAIRED GASTRIC EMPTYING
     Dosage: 5 MG, TID
     Route: 048
     Dates: start: 2014
  157. OMEPRAZOLE. [Concomitant]
     Active Substance: OMEPRAZOLE
     Indication: GASTROOESOPHAGEAL REFLUX DISEASE
     Dosage: 40 MG, BID
     Route: 048
     Dates: start: 20150101
  158. WELLBUTRIN [Concomitant]
     Active Substance: BUPROPION HYDROCHLORIDE
     Indication: DEPRESSION
     Dosage: UNK
     Route: 065
     Dates: start: 20140101
  159. ROBITUSSIN (GUAIFENESIN) [Concomitant]
     Active Substance: GUAIFENESIN
     Indication: CHRONIC SINUSITIS
     Dosage: UNK
     Route: 065
     Dates: start: 20150818
  160. METOCLOPRAMIDE. [Concomitant]
     Active Substance: METOCLOPRAMIDE
     Indication: NAUSEA
     Dosage: UNK
     Route: 065
     Dates: start: 20180722, end: 20180727
  161. SODIUM CHLORIDE. [Concomitant]
     Active Substance: SODIUM CHLORIDE
     Dosage: 0.9 PERCENT
     Route: 065
     Dates: start: 20171006, end: 20171013
  162. DUONEB [Concomitant]
     Active Substance: ALBUTEROL SULFATE\IPRATROPIUM BROMIDE
     Indication: WHEEZING
     Dosage: UNK
     Route: 065
     Dates: start: 20160531, end: 20160601
  163. MERREM [Concomitant]
     Active Substance: MEROPENEM
     Dosage: UNK
     Route: 065
     Dates: start: 20161031, end: 20161102
  164. MERREM [Concomitant]
     Active Substance: MEROPENEM
     Dosage: UNK
     Route: 065
     Dates: start: 20170330, end: 20170404
  165. COMPAZINE                          /00013302/ [Concomitant]
     Active Substance: PROCHLORPERAZINE EDISYLATE
     Indication: HEADACHE
     Dosage: UNK
     Route: 065
     Dates: start: 20180529, end: 20180529
  166. MORPHINE [Concomitant]
     Active Substance: MORPHINE
     Indication: PAIN
     Dosage: UNK
     Route: 065
     Dates: start: 20160619, end: 20160619
  167. PROPOFOL. [Concomitant]
     Active Substance: PROPOFOL
     Indication: SEDATION
     Dosage: UNK
     Route: 065
     Dates: start: 20160615, end: 20160616
  168. NEBCIN [Concomitant]
     Active Substance: TOBRAMYCIN SULFATE
     Indication: PSEUDOMONAS INFECTION
     Dosage: UNK
     Route: 065
     Dates: start: 20160618, end: 20160620
  169. NEBCIN [Concomitant]
     Active Substance: TOBRAMYCIN SULFATE
     Dosage: UNK
     Route: 065
     Dates: start: 20170702, end: 20170720
  170. TAMIFLU [Concomitant]
     Active Substance: OSELTAMIVIR PHOSPHATE
     Indication: INFLUENZA
     Dosage: UNK
     Route: 065
     Dates: start: 20161130, end: 20161201
  171. ATARAX [Concomitant]
     Active Substance: HYDROXYZINE HYDROCHLORIDE
     Indication: PRURITUS
     Dosage: UNK
     Route: 065
     Dates: start: 20170329, end: 20170330
  172. TOBI [Suspect]
     Active Substance: TOBRAMYCIN
     Dosage: 300 OT, BID
     Route: 055
     Dates: start: 20170416, end: 20170430
  173. TOBI [Suspect]
     Active Substance: TOBRAMYCIN
     Dosage: 300 MG, BID
     Route: 055
     Dates: start: 20171003, end: 20171004
  174. CAYSTON [Suspect]
     Active Substance: AZTREONAM
     Dosage: 75 MG, TID
     Route: 055
     Dates: start: 20160307, end: 20160331
  175. ALBUTEROL                          /00139501/ [Concomitant]
     Active Substance: ALBUTEROL
     Indication: INFECTIVE PULMONARY EXACERBATION OF CYSTIC FIBROSIS
     Dosage: 2.5 MG, 4 PER DAY/PRN
     Route: 055
     Dates: start: 20171007
  176. ALBUTEROL                          /00139501/ [Concomitant]
     Active Substance: ALBUTEROL
     Dosage: UNK
     Route: 065
     Dates: start: 20180722, end: 20180727
  177. TYLENOL [Concomitant]
     Active Substance: ACETAMINOPHEN
     Dosage: UNK
     Route: 065
     Dates: start: 20170327, end: 20170404
  178. METOCLOPRAMIDE. [Concomitant]
     Active Substance: METOCLOPRAMIDE
     Dosage: UNK
     Route: 065
     Dates: start: 20181026, end: 20181102
  179. SODIUM CHLORIDE. [Concomitant]
     Active Substance: SODIUM CHLORIDE
     Dosage: 0.9 PERCENT
     Route: 065
     Dates: start: 20160825, end: 20160902
  180. SODIUM CHLORIDE. [Concomitant]
     Active Substance: SODIUM CHLORIDE
     Dosage: 0.9 PERCENT
     Route: 065
     Dates: start: 20161129, end: 20161208
  181. ISOVUE [Concomitant]
     Active Substance: IOPAMIDOL
     Indication: SCAN WITH CONTRAST
     Dosage: UNK
     Route: 065
     Dates: start: 20160601, end: 20160601
  182. LIDOCAINE. [Concomitant]
     Active Substance: LIDOCAINE
     Dosage: 4 %, UNK
     Route: 065
     Dates: start: 20160619, end: 20160619
  183. LIDOCAINE. [Concomitant]
     Active Substance: LIDOCAINE
     Dosage: 4 %, UNK
     Route: 065
     Dates: start: 20170717, end: 20170717
  184. MERREM [Concomitant]
     Active Substance: MEROPENEM
     Indication: PROPHYLAXIS
     Dosage: UNK
     Route: 065
     Dates: start: 20160530, end: 20160603
  185. MERREM [Concomitant]
     Active Substance: MEROPENEM
     Dosage: UNK
     Route: 065
     Dates: start: 20170501, end: 20170515
  186. VERSED [Concomitant]
     Active Substance: MIDAZOLAM HYDROCHLORIDE
     Dosage: UNK
     Route: 065
     Dates: start: 20170712, end: 20170712
  187. PNEUMOVAX 23 [Concomitant]
     Active Substance: PNEUMOCOCCAL VACCINE, POLYVALENT 23
     Indication: PROPHYLAXIS
     Dosage: UNK
     Route: 065
     Dates: start: 20160619, end: 20160619
  188. NEBCIN [Concomitant]
     Active Substance: TOBRAMYCIN SULFATE
     Dosage: UNK
     Route: 065
     Dates: start: 20170109, end: 20170118
  189. NEBCIN [Concomitant]
     Active Substance: TOBRAMYCIN SULFATE
     Dosage: UNK
     Route: 065
     Dates: start: 20170327, end: 20170404
  190. NEBCIN [Concomitant]
     Active Substance: TOBRAMYCIN SULFATE
     Dosage: UNK
     Route: 065
     Dates: start: 20170609, end: 20170619
  191. NEBCIN [Concomitant]
     Active Substance: TOBRAMYCIN SULFATE
     Dosage: UNK
     Route: 065
     Dates: start: 20180223, end: 20180315
  192. NEBCIN [Concomitant]
     Active Substance: TOBRAMYCIN SULFATE
     Dosage: UNK
     Route: 065
     Dates: start: 20180601, end: 20180605
  193. LACTOBACILLUS RHAMNOSUS [Concomitant]
     Active Substance: LACTOBACILLUS RHAMNOSUS
     Dosage: UNK
     Route: 065
     Dates: start: 20170702, end: 20170720
  194. LIDODERM [Concomitant]
     Active Substance: LIDOCAINE
     Dosage: UNK
     Route: 065
     Dates: start: 20170109, end: 20170118
  195. CIPROFLOXACIN. [Concomitant]
     Active Substance: CIPROFLOXACIN
     Indication: BRONCHIECTASIS
     Dosage: UNK
     Route: 065
     Dates: start: 20170211, end: 20170304
  196. MAXIPIME [Concomitant]
     Active Substance: CEFEPIME HYDROCHLORIDE
     Indication: PSEUDOMONAS INFECTION
     Dosage: UNK
     Route: 065
     Dates: start: 20170328, end: 20170330
  197. HEPARIN PF NOVO [Concomitant]
     Dosage: UNK
     Route: 065
     Dates: start: 20170702, end: 20170720
  198. VANCOMYCIN [Concomitant]
     Active Substance: VANCOMYCIN
     Indication: STAPHYLOCOCCAL INFECTION
     Dosage: UNK
     Route: 065
     Dates: start: 20170609, end: 20170619
  199. IMITREX [Concomitant]
     Active Substance: SUMATRIPTAN SUCCINATE
     Dosage: UNK
     Route: 065
     Dates: start: 20180223, end: 20180316
  200. ZITHROMYCIN [Concomitant]
     Active Substance: AZITHROMYCIN ANHYDROUS
     Indication: CYSTIC FIBROSIS LUNG
     Dosage: UNK
     Route: 065
     Dates: start: 20160617, end: 20160620
  201. TEZACAFTOR [Concomitant]
     Active Substance: TEZACAFTOR
     Indication: CYSTIC FIBROSIS
     Dosage: UNK
     Route: 065
     Dates: start: 20180611
  202. CAYSTON [Concomitant]
     Active Substance: AZTREONAM
     Indication: PSEUDOMONAS INFECTION
     Dosage: UNK
     Route: 065
     Dates: start: 20150101

REACTIONS (23)
  - Musculoskeletal chest pain [Unknown]
  - Pruritus [Unknown]
  - Chest pain [Recovered/Resolved]
  - Cough [Unknown]
  - Sputum increased [Unknown]
  - Urticaria [Unknown]
  - Asthenia [Unknown]
  - Productive cough [Unknown]
  - Pyrexia [Unknown]
  - Swelling [Unknown]
  - Weight increased [Unknown]
  - Secretion discharge [Unknown]
  - Chest discomfort [Unknown]
  - Night sweats [Unknown]
  - Pseudomonas test positive [Unknown]
  - Staphylococcus test positive [Unknown]
  - Sputum discoloured [Unknown]
  - Infective pulmonary exacerbation of cystic fibrosis [Recovered/Resolved]
  - Haemoptysis [Unknown]
  - Dyspnoea [Recovered/Resolved]
  - Decreased appetite [Unknown]
  - Headache [Unknown]
  - Diarrhoea [Unknown]

NARRATIVE: CASE EVENT DATE: 20160503
